FAERS Safety Report 12819825 (Version 2)
Quarter: 2017Q4

REPORT INFORMATION
  Report Type: Report from Study
  Country: US (occurrence: US)
  Receive Date: 20161006
  Receipt Date: 20171004
  Transmission Date: 20180320
  Serious: No
  Sender: FDA-Public Use
  Company Number: US-AMGEN-USASL2015104188

PATIENT
  Age: 84 Year
  Sex: Female

DRUGS (2)
  1. PROLIA [Suspect]
     Active Substance: DENOSUMAB
     Indication: PRODUCT USED FOR UNKNOWN INDICATION
     Dosage: UNK
     Route: 065
  2. BONITA [Suspect]
     Active Substance: CHLORMADINONE ACETATE\ETHINYL ESTRADIOL
     Indication: ABDOMINAL DISCOMFORT
     Route: 065

REACTIONS (10)
  - Pain in extremity [Recovering/Resolving]
  - Excessive cerumen production [Unknown]
  - Hypoacusis [Unknown]
  - Memory impairment [Unknown]
  - Arthralgia [Unknown]
  - Polyp [Unknown]
  - Gastric disorder [Unknown]
  - Arthritis [Not Recovered/Not Resolved]
  - Gait disturbance [Unknown]
  - Renal disorder [Unknown]
